FAERS Safety Report 15413839 (Version 1)
Quarter: 2018Q3

REPORT INFORMATION
  Report Type: Report from Study
  Country: TW (occurrence: TW)
  Receive Date: 20180921
  Receipt Date: 20180921
  Transmission Date: 20181010
  Serious: Yes (Other)
  Sender: FDA-Public Use
  Company Number: PHHY2018TW099942

PATIENT
  Age: 56 Year
  Sex: Male
  Weight: 56.8 kg

DRUGS (2)
  1. PKC412 [Suspect]
     Active Substance: MIDOSTAURIN
     Indication: ACUTE MYELOID LEUKAEMIA
     Dosage: 50 MG, UNK
     Route: 048
     Dates: start: 20180416, end: 20180516
  2. VORICONAZOLE. [Concomitant]
     Active Substance: VORICONAZOLE
     Indication: BRONCHOPULMONARY ASPERGILLOSIS
     Dosage: 200 MG, TID
     Route: 065
     Dates: start: 20180222, end: 20180516

REACTIONS (2)
  - Cytomegalovirus test positive [Unknown]
  - Dermatitis bullous [Recovered/Resolved]

NARRATIVE: CASE EVENT DATE: 20180515
